FAERS Safety Report 4339242-2 (Version None)
Quarter: 2004Q2

REPORT INFORMATION
  Report Type: 
  Country: None (occurrence: None)
  Receive Date: 20040412
  Receipt Date: 20040401
  Transmission Date: 20050107
  Serious: Yes (Other)
  Sender: FDA-Public Use
  Company Number: US-JNJFOC-20040301411

PATIENT
  Age: 53 Year
  Sex: Female
  Weight: 77.1115 kg

DRUGS (6)
  1. TOPAMAX [Suspect]
     Indication: CONVULSION
     Dosage: 350 MG, IN 1 DAY, ORAL
     Route: 048
     Dates: start: 20031101
  2. ZONAGRAN (ZONISAMIDE) [Suspect]
     Indication: CONVULSION
     Dosage: 500 MG, IN 1 DAY
     Dates: start: 20031101
  3. KEPPRA [Concomitant]
  4. LOPRESSOR [Concomitant]
  5. PRILOSEC [Concomitant]
  6. METAMUCIL-2 [Concomitant]

REACTIONS (9)
  - BLINDNESS UNILATERAL [None]
  - CATARACT [None]
  - CONDITION AGGRAVATED [None]
  - CONVULSION [None]
  - DIPLOPIA [None]
  - HEADACHE [None]
  - MALAISE [None]
  - NAUSEA [None]
  - WEIGHT DECREASED [None]
